FAERS Safety Report 6017660-4 (Version None)
Quarter: 2008Q4

REPORT INFORMATION
  Report Type: 
  Country: None (occurrence: None)
  Receive Date: 20081223
  Receipt Date: 20081215
  Transmission Date: 20090506
  Serious: Yes (Life-Threatening)
  Sender: FDA-Public Use
  Company Number: NL-ROCHE-603144

PATIENT
  Sex: Female
  Weight: 53 kg

DRUGS (1)
  1. CYMEVENE [Suspect]
     Dosage: DOSAGE FORM REPORTED AS INFUSION.
     Route: 042
     Dates: start: 20081118, end: 20081119

REACTIONS (3)
  - ANGIOEDEMA [None]
  - OROPHARYNGEAL PAIN [None]
  - VITH NERVE PARALYSIS [None]
